FAERS Safety Report 8419604-4 (Version None)
Quarter: 2012Q2

REPORT INFORMATION
  Report Type: 
  Country: None (occurrence: None)
  Receive Date: 20120607
  Receipt Date: 20120530
  Transmission Date: 20120825
  Serious: Yes (Death, Hospitalization, Other)
  Sender: FDA-Public Use
  Company Number: US-BRISTOL-MYERS SQUIBB COMPANY-16651028

PATIENT
  Age: 74 Year
  Sex: Female

DRUGS (1)
  1. ABILIFY [Suspect]

REACTIONS (5)
  - PERFORMANCE STATUS DECREASED [None]
  - TARDIVE DYSKINESIA [None]
  - BLOOD GLUCOSE ABNORMAL [None]
  - DEATH [None]
  - BLOOD PRESSURE INADEQUATELY CONTROLLED [None]
